FAERS Safety Report 7010729-7 (Version None)
Quarter: 2010Q3

REPORT INFORMATION
  Report Type: 
  Country: None (occurrence: None)
  Receive Date: 20100923
  Receipt Date: 20100916
  Transmission Date: 20110219
  Serious: Yes (Hospitalization)
  Sender: FDA-Public Use
  Company Number: SE-ABBOTT-10P-150-0671283-00

PATIENT
  Sex: Female

DRUGS (2)
  1. HUMIRA [Suspect]
     Indication: JUVENILE ARTHRITIS
     Route: 058
     Dates: start: 20050830, end: 20100211
  2. METHOTREXATE [Suspect]
     Indication: JUVENILE ARTHRITIS
     Dosage: FORM STRENGTH: 2.5 MG; 15 MG ONCE PER WEEK
     Route: 048
     Dates: start: 20080821, end: 20100211

REACTIONS (2)
  - B-CELL LYMPHOMA [None]
  - LUNG NEOPLASM [None]
